FAERS Safety Report 8840680 (Version 1)
Quarter: 2012Q4

REPORT INFORMATION
  Report Type: 
  Country: US (occurrence: US)
  Receive Date: 20121015
  Receipt Date: 20121015
  Transmission Date: 20130627
  Serious: No
  Sender: FDA-Public Use
  Company Number: US-BAYER-2012-107250

PATIENT
  Age: 47 Year
  Sex: Male

DRUGS (1)
  1. MAGNEVIST [Suspect]
     Indication: NUCLEAR MAGNETIC RESONANCE IMAGING
     Dosage: 20 ml, ONCE
     Dates: start: 20121010, end: 20121010

REACTIONS (5)
  - Rash [None]
  - Sneezing [None]
  - Dyspnoea [None]
  - Wheezing [None]
  - Urticaria [None]
